FAERS Safety Report 26011560 (Version 1)
Quarter: 2025Q4

REPORT INFORMATION
  Report Type: Report from Study
  Country: US (occurrence: US)
  Receive Date: 20251107
  Receipt Date: 20251107
  Transmission Date: 20260118
  Serious: Yes (Other)
  Sender: ABBVIE
  Company Number: US-ABBVIE-6344182

PATIENT
  Age: 70 Year
  Sex: Female

DRUGS (3)
  1. RINVOQ [Suspect]
     Active Substance: UPADACITINIB
     Indication: Rheumatoid arthritis
     Dosage: STRENGTH;15 MG
     Route: 048
     Dates: start: 202508
  2. RINVOQ [Suspect]
     Active Substance: UPADACITINIB
     Indication: Rheumatoid arthritis
     Route: 048
  3. RINVOQ [Suspect]
     Active Substance: UPADACITINIB
     Indication: Rheumatoid arthritis
     Dosage: STRENGTH;15 MG
     Route: 048
     Dates: start: 20240305, end: 20250510

REACTIONS (9)
  - Fibula fracture [Unknown]
  - Lower limb fracture [Unknown]
  - Fall [Recovering/Resolving]
  - Toothache [Recovering/Resolving]
  - Herpes zoster [Recovering/Resolving]
  - Dizziness [Unknown]
  - Hypoaesthesia [Recovering/Resolving]
  - Coccydynia [Recovering/Resolving]
  - Back injury [Unknown]

NARRATIVE: CASE EVENT DATE: 20250101
